FAERS Safety Report 18893411 (Version 1)
Quarter: 2021Q1

REPORT INFORMATION
  Report Type: Spontaneous
  Country: US (occurrence: US)
  Receive Date: 20210215
  Receipt Date: 20210215
  Transmission Date: 20210420
  Serious: No
  Sender: FDA-Public Use
  Company Number: US-BRISTOL-MYERS SQUIBB COMPANY-BMS-2021-012893

PATIENT
  Age: 81 Year
  Sex: Male
  Weight: 80.73 kg

DRUGS (11)
  1. VITAMIN D3 [Concomitant]
     Active Substance: CHOLECALCIFEROL
     Indication: PRODUCT USED FOR UNKNOWN INDICATION
     Dosage: 5000 MILLIGRAM
     Route: 065
  2. L ARGININE [ARGININE] [Concomitant]
     Active Substance: ARGININE
     Indication: PRODUCT USED FOR UNKNOWN INDICATION
     Dosage: 2 BID
     Route: 065
  3. CINNAMON [CINNAMOMUM VERUM] [Concomitant]
     Indication: PRODUCT USED FOR UNKNOWN INDICATION
     Dosage: SUPPLEMENT  BID
     Route: 065
  4. VASCEPA [Concomitant]
     Active Substance: ICOSAPENT ETHYL
     Indication: THROMBOSIS PROPHYLAXIS
     Route: 065
  5. COENZYME Q10 [Concomitant]
     Active Substance: DIETARY SUPPLEMENT\UBIDECARENONE
     Indication: THROMBOSIS PROPHYLAXIS
     Route: 065
  6. VITAMIN D NOS [Concomitant]
     Active Substance: VITAMIN D NOS
     Indication: PRODUCT USED FOR UNKNOWN INDICATION
     Route: 065
  7. CRESTOR [Concomitant]
     Active Substance: ROSUVASTATIN CALCIUM
     Indication: PRODUCT USED FOR UNKNOWN INDICATION
     Dosage: 5 MILLIGRAM ONCE EVERY OTHER DAY
     Route: 065
  8. OLMESARTAN [Concomitant]
     Active Substance: OLMESARTAN
     Indication: PRODUCT USED FOR UNKNOWN INDICATION
     Dosage: 40 MILLIGRAM, QD
     Route: 065
  9. ELIQUIS [Suspect]
     Active Substance: APIXABAN
     Indication: PRODUCT USED FOR UNKNOWN INDICATION
     Dosage: 5 MILLIGRAM, BID
     Route: 048
  10. TOPROL XL [Concomitant]
     Active Substance: METOPROLOL SUCCINATE
     Indication: PRODUCT USED FOR UNKNOWN INDICATION
     Dosage: 100 MILLIGRAM, QD
     Route: 065
  11. ELIQUIS [Suspect]
     Active Substance: APIXABAN
     Dosage: 1/2 BID (2.5 MG BID )
     Route: 048

REACTIONS (2)
  - Chromaturia [Recovered/Resolved]
  - Wrong technique in product usage process [Unknown]

NARRATIVE: CASE EVENT DATE: 202101
